FAERS Safety Report 19752456 (Version 9)
Quarter: 2022Q3

REPORT INFORMATION
  Report Type: Report from Study
  Country: US (occurrence: US)
  Receive Date: 20210826
  Receipt Date: 20220801
  Transmission Date: 20221026
  Serious: Yes (Hospitalization, Other)
  Sender: FDA-Public Use
  Company Number: US-NOVARTISPH-NVSC2021US192970

PATIENT
  Sex: Male
  Weight: 65.2 kg

DRUGS (3)
  1. ENTRESTO [Suspect]
     Active Substance: SACUBITRIL\VALSARTAN
     Indication: Product used for unknown indication
     Dosage: 0.5 DF, BID (24.26 MG)
     Route: 048
     Dates: start: 2021
  2. ENTRESTO [Suspect]
     Active Substance: SACUBITRIL\VALSARTAN
     Dosage: 1 DOSAGE FORM, BID
     Route: 048
  3. ELIQUIS [Suspect]
     Active Substance: APIXABAN
     Indication: Product used for unknown indication
     Dosage: UNK
     Route: 065

REACTIONS (13)
  - Fear [Unknown]
  - Palpitations [Unknown]
  - Malaise [Unknown]
  - Muscle spasms [Unknown]
  - Heart rate increased [Unknown]
  - Loss of consciousness [Unknown]
  - Memory impairment [Unknown]
  - Stress [Unknown]
  - Sciatica [Not Recovered/Not Resolved]
  - Pain in extremity [Unknown]
  - Abdominal discomfort [Unknown]
  - Hypotension [Unknown]
  - Wrong technique in product usage process [Unknown]

NARRATIVE: CASE EVENT DATE: 20210101
